FAERS Safety Report 23627933 (Version 1)
Quarter: 2024Q1

REPORT INFORMATION
  Report Type: Spontaneous
  Country: US (occurrence: None)
  Receive Date: 20240313
  Receipt Date: 20240313
  Transmission Date: 20240409
  Serious: Yes (unspecified)
  Sender: FDA-Public Use
  Company Number: None

PATIENT
  Age: 46 Year
  Sex: Male

DRUGS (1)
  1. CANNABIDIOL\HERBALS [Suspect]
     Active Substance: CANNABIDIOL\HERBALS

REACTIONS (7)
  - Overdose [None]
  - Substance use [None]
  - Malaise [None]
  - Dizziness [None]
  - Brain fog [None]
  - Fear [None]
  - Memory impairment [None]

NARRATIVE: CASE EVENT DATE: 20240302
